FAERS Safety Report 7913074-8 (Version None)
Quarter: 2011Q4

REPORT INFORMATION
  Report Type: 
  Country: None (occurrence: None)
  Receive Date: 20111114
  Receipt Date: 20111109
  Transmission Date: 20120403
  Serious: No
  Sender: FDA-Public Use
  Company Number: US-PFIZER INC-2011274909

PATIENT
  Sex: Female
  Weight: 79.3 kg

DRUGS (2)
  1. IBUPROFEN (ADVIL) [Suspect]
     Indication: PAIN
     Dosage: 200 MG, DAILY
     Route: 048
     Dates: start: 20111107
  2. PRONUTRIENTS PROBIOTICS [Suspect]
     Indication: GASTRIC DISORDER
     Dosage: UNK, DAILY
     Route: 048
     Dates: start: 20111105, end: 20111101

REACTIONS (6)
  - FATIGUE [None]
  - NAUSEA [None]
  - PAIN [None]
  - MALAISE [None]
  - DRUG INEFFECTIVE [None]
  - MUSCLE SPASMS [None]
